FAERS Safety Report 17369295 (Version 1)
Quarter: 2020Q1

REPORT INFORMATION
  Report Type: Spontaneous
  Country: US (occurrence: US)
  Receive Date: 20200203
  Receipt Date: 20200203
  Transmission Date: 20200409
  Serious: Yes (Other)
  Sender: FDA-Public Use
  Company Number: None

PATIENT
  Age: 75 Year
  Sex: Female

DRUGS (14)
  1. LOSARTAN. [Concomitant]
     Active Substance: LOSARTAN
  2. TADALAFIL. [Suspect]
     Active Substance: TADALAFIL
     Indication: PULMONARY ARTERIAL HYPERTENSION
     Route: 048
     Dates: start: 20181010
  3. VITAMIN C [Concomitant]
     Active Substance: ASCORBIC ACID
  4. ZOCOR [Concomitant]
     Active Substance: SIMVASTATIN
  5. DEMADEX [Concomitant]
     Active Substance: TORSEMIDE
  6. VITAMIN E [Concomitant]
     Active Substance: .ALPHA.-TOCOPHEROL
  7. LORATADINE. [Concomitant]
     Active Substance: LORATADINE
  8. RESTORIL [Concomitant]
     Active Substance: TEMAZEPAM
  9. RESTASIS [Concomitant]
     Active Substance: CYCLOSPORINE
  10. FISH OIL [Concomitant]
     Active Substance: FISH OIL
  11. DIGOXIN. [Concomitant]
     Active Substance: DIGOXIN
  12. VITAMIN B12 [Concomitant]
     Active Substance: CYANOCOBALAMIN
  13. SYNTHROID [Concomitant]
     Active Substance: LEVOTHYROXINE SODIUM
  14. CELEXA [Concomitant]
     Active Substance: CITALOPRAM HYDROBROMIDE

REACTIONS (1)
  - Skin cancer [None]
